FAERS Safety Report 5322217-4 (Version None)
Quarter: 2007Q2

REPORT INFORMATION
  Report Type: 
  Country: None (occurrence: None)
  Receive Date: 20070511
  Receipt Date: 20070430
  Transmission Date: 20071010
  Serious: Yes (Death, Hospitalization)
  Sender: FDA-Public Use
  Company Number: FR-ROCHE-495521

PATIENT
  Age: 69 Year
  Sex: Male

DRUGS (2)
  1. GANCICLOVIR SODIUM [Suspect]
     Indication: GLIOMA
     Route: 042
     Dates: start: 20061007, end: 20061020
  2. CEREPRO [Suspect]
     Indication: GLIOMA
     Dosage: SINGLE DOSE.
     Route: 018
     Dates: start: 20061002, end: 20061002

REACTIONS (1)
  - DIABETIC HYPEROSMOLAR COMA [None]
